FAERS Safety Report 25932864 (Version 2)
Quarter: 2025Q4

REPORT INFORMATION
  Report Type: Report from Study
  Country: EU (occurrence: EU)
  Receive Date: 20251017
  Receipt Date: 20251208
  Transmission Date: 20260117
  Serious: Yes (Hospitalization)
  Sender: ABBVIE
  Company Number: EU-ABBVIE-6505709

PATIENT
  Age: 51 Year
  Sex: Female

DRUGS (7)
  1. FOSCARBIDOPA\FOSLEVODOPA [Suspect]
     Active Substance: FOSCARBIDOPA\FOSLEVODOPA
     Indication: Parkinson^s disease
     Route: 058
     Dates: start: 20250617
  2. BENSERAZIDE HYDROCHLORIDE\LEVODOPA [Concomitant]
     Active Substance: BENSERAZIDE HYDROCHLORIDE\LEVODOPA
     Indication: Parkinson^s disease
  3. CLONAZEPAM [Concomitant]
     Active Substance: CLONAZEPAM
     Indication: Product used for unknown indication
     Dosage: 0.75 MG
  4. ENTACAPONE [Concomitant]
     Active Substance: ENTACAPONE
     Indication: Parkinson^s disease
  5. CARBIDOPA AND LEVODOPA [Concomitant]
     Active Substance: CARBIDOPA\LEVODOPA
     Indication: Parkinson^s disease
  6. ROPINIROLE [Concomitant]
     Active Substance: ROPINIROLE
     Indication: Parkinson^s disease
     Dosage: RET
  7. CITALOPRAM [Concomitant]
     Active Substance: CITALOPRAM
     Indication: Parkinson^s disease

REACTIONS (15)
  - Abscess [Not Recovered/Not Resolved]
  - Device issue [Unknown]
  - Erysipelas [Unknown]
  - On and off phenomenon [Unknown]
  - Fatigue [Unknown]
  - Hot flush [Unknown]
  - Paraesthesia [Unknown]
  - Tension [Unknown]
  - Dyskinesia [Unknown]
  - Dry mouth [Unknown]
  - Infusion site reaction [Unknown]
  - Infusion site induration [Unknown]
  - Infusion site haematoma [Unknown]
  - Nausea [Unknown]
  - Gastrointestinal disorder [Unknown]

NARRATIVE: CASE EVENT DATE: 20250101
